FAERS Safety Report 23586272 (Version 1)
Quarter: 2024Q1

REPORT INFORMATION
  Report Type: Spontaneous
  Country: US (occurrence: None)
  Receive Date: 20240301
  Receipt Date: 20240301
  Transmission Date: 20240410
  Serious: Yes (Other)
  Sender: FDA-Public Use
  Company Number: None

PATIENT
  Age: 60 Year
  Sex: Female
  Weight: 91.35 kg

DRUGS (5)
  1. EVENITY [Suspect]
     Active Substance: ROMOSOZUMAB-AQQG
     Indication: Osteoporosis
     Dosage: OTHER QUANTITY : 1 INJECTION(S);?OTHER FREQUENCY : MONTHLY;?
     Route: 030
     Dates: start: 20231127, end: 20240205
  2. OMEPRAZOLE [Concomitant]
     Active Substance: OMEPRAZOLE
  3. ESTRADIOL [Concomitant]
  4. EMGALITY [Concomitant]
     Active Substance: GALCANEZUMAB-GNLM
  5. Vitamin D [Concomitant]

REACTIONS (6)
  - Tinnitus [None]
  - Headache [None]
  - Pain in jaw [None]
  - Arthralgia [None]
  - Blood pressure increased [None]
  - Ear discomfort [None]

NARRATIVE: CASE EVENT DATE: 20240205
